FAERS Safety Report 23283763 (Version 2)
Quarter: 2024Q1

REPORT INFORMATION
  Report Type: Spontaneous
  Country: RU (occurrence: RU)
  Receive Date: 20231211
  Receipt Date: 20240201
  Transmission Date: 20240410
  Serious: Yes (Hospitalization, Other)
  Sender: FDA-Public Use
  Company Number: RU-SA-SAC20231205000388

PATIENT
  Age: 64 Year
  Sex: Female
  Weight: 82 kg

DRUGS (16)
  1. ISATUXIMAB [Suspect]
     Active Substance: ISATUXIMAB
     Indication: Plasma cell myeloma
     Dosage: 800 MG QW
     Route: 065
     Dates: start: 20131012
  2. POMALIDOMIDE [Suspect]
     Active Substance: POMALIDOMIDE
     Dosage: 3 MG QD
     Route: 065
     Dates: start: 20131012
  3. DEXAMETHASONE [Suspect]
     Active Substance: DEXAMETHASONE
     Dosage: 20 MG QW
     Route: 065
     Dates: start: 20131012
  4. XARELTO [Concomitant]
     Active Substance: RIVAROXABAN
     Indication: Deep vein thrombosis
     Dosage: 20 MG QD
     Route: 065
  5. CEFON [CEFOPERAZONE SODIUM;SULBACTAM SODIUM] [Concomitant]
  6. CILASTATIN SODIUM\IMIPENEM [Concomitant]
     Active Substance: CILASTATIN SODIUM\IMIPENEM
     Dosage: UNK UNK, TID
     Route: 065
  7. ZERBAXA [Concomitant]
     Active Substance: CEFTOLOZANE SULFATE\TAZOBACTAM SODIUM
     Dosage: UNK, TID
     Route: 065
  8. LINEZOLID [Concomitant]
     Active Substance: LINEZOLID
     Dosage: 600 MG, BID
     Route: 041
  9. ALKERAN [Concomitant]
     Active Substance: MELPHALAN
     Indication: Plasma cell myeloma
     Dosage: 200MG
     Route: 065
     Dates: start: 20210117
  10. LENALIDOMIDE [Concomitant]
     Active Substance: LENALIDOMIDE
     Dosage: 10 MG QD; SINCE MARCH 2021 THERAPY WITH REVLIMID 10 MG/DAY WAS STARTED
     Route: 065
     Dates: end: 20221128
  11. LENALIDOMIDE [Concomitant]
     Active Substance: LENALIDOMIDE
     Dosage: 25 MG QD
     Dates: start: 20230120
  12. BORTEZOMIB [Concomitant]
     Active Substance: BORTEZOMIB
     Dosage: UNK UNK, QOW
     Route: 065
  13. TRIMETAZIDINE DIHYDROCHLORIDE [Concomitant]
     Active Substance: TRIMETAZIDINE DIHYDROCHLORIDE
     Dosage: 1 DF QD
     Route: 065
  14. SPIRONOLACTONE [Concomitant]
     Active Substance: SPIRONOLACTONE
     Dosage: 50 MG QD
     Route: 065
  15. ENALAPRIL [Concomitant]
     Active Substance: ENALAPRIL
     Dosage: 2.5 MG BID
     Route: 065
  16. REVLIMID [Concomitant]
     Active Substance: LENALIDOMIDE
     Dosage: UNK
     Route: 065
     Dates: start: 202103, end: 202112

REACTIONS (5)
  - Disease progression [Unknown]
  - Renal failure [Unknown]
  - Compression fracture [Unknown]
  - Spinal pain [Unknown]
  - Mitral valve disease [Unknown]

NARRATIVE: CASE EVENT DATE: 20230523
